FAERS Safety Report 19393186 (Version 1)
Quarter: 2021Q2

REPORT INFORMATION
  Report Type: Spontaneous
  Country: US (occurrence: US)
  Receive Date: 20210609
  Receipt Date: 20210609
  Transmission Date: 20210717
  Serious: No
  Sender: FDA-Public Use
  Company Number: US-MICRO LABS LIMITED-ML2021-01223

PATIENT
  Age: 72 Year
  Sex: Female

DRUGS (1)
  1. DORZOLAMIDE HYDROCHLORIDE AND TIMOLO MALEATE OPHTHALMIC SOLUTION USP, [Suspect]
     Active Substance: DORZOLAMIDE\TIMOLOL
     Indication: GLAUCOMA
     Dosage: 22.3 MG/6.8 MG PER ML
     Route: 047

REACTIONS (2)
  - Product container issue [Unknown]
  - Product dose omission issue [Unknown]
